FAERS Safety Report 9867336 (Version 1)
Quarter: 2014Q1

REPORT INFORMATION
  Report Type: Spontaneous
  Country: GB (occurrence: GB)
  Receive Date: 20140204
  Receipt Date: 20140204
  Transmission Date: 20141002
  Serious: Yes (Other)
  Sender: FDA-Public Use
  Company Number: GB-UCBSA-111130

PATIENT
  Age: 28 Year
  Sex: Male

DRUGS (4)
  1. KEPPRA [Suspect]
     Indication: CONVULSION
     Dosage: DOSE: 1000 MG
  2. KEPPRA [Suspect]
     Indication: CONVULSION
     Dosage: DOSE: 125 MG IN MORNING AND 250 MG AT NIGHT
  3. LAMOTRIGINE [Suspect]
     Dosage: DOSE: 75 MG
  4. LAMOTRIGINE [Suspect]
     Dosage: DOSE: 25 MG

REACTIONS (4)
  - Syncope [Not Recovered/Not Resolved]
  - Peripheral coldness [Not Recovered/Not Resolved]
  - Asthenia [Not Recovered/Not Resolved]
  - Muscular weakness [Not Recovered/Not Resolved]
